FAERS Safety Report 12597849 (Version 1)
Quarter: 2016Q3

REPORT INFORMATION
  Report Type: Spontaneous
  Country: US (occurrence: US)
  Receive Date: 20160726
  Receipt Date: 20160726
  Transmission Date: 20161109
  Serious: No
  Sender: FDA-Public Use
  Company Number: US-MYLANLABS-2016M1011382

PATIENT
  Sex: Female

DRUGS (2)
  1. ATORVASTATIN CALCIUM TABLETS [Suspect]
     Active Substance: ATORVASTATIN CALCIUM
     Indication: BLOOD CHOLESTEROL
     Dosage: 40 MG, QD
     Route: 048
     Dates: start: 20151103, end: 201511
  2. ATORVASTATIN CALCIUM TABLETS [Suspect]
     Active Substance: ATORVASTATIN CALCIUM
     Indication: BLOOD CHOLESTEROL
     Dosage: 10 MG, QD
     Route: 048
     Dates: start: 20160304, end: 20160308

REACTIONS (5)
  - Chills [Recovered/Resolved]
  - Hepatic enzyme abnormal [Recovered/Resolved]
  - Hyperhidrosis [Recovered/Resolved]
  - Hepatomegaly [Recovered/Resolved]
  - Vomiting [Recovered/Resolved]
